FAERS Safety Report 10644005 (Version 2)
Quarter: 2015Q3

REPORT INFORMATION
  Report Type: Spontaneous
  Country: US (occurrence: US)
  Receive Date: 20141210
  Receipt Date: 20150903
  Transmission Date: 20151125
  Serious: Yes (Other)
  Sender: FDA-Public Use
  Company Number: US-BAYER-2014-179128

PATIENT
  Sex: Male

DRUGS (3)
  1. CIPRO [Suspect]
     Active Substance: CIPROFLOXACIN HYDROCHLORIDE
     Indication: URINARY TRACT INFECTION
     Dosage: 14 MORE PILLS BEFORE STOPPINGUNK
  2. CIPRO [Suspect]
     Active Substance: CIPROFLOXACIN HYDROCHLORIDE
     Indication: URINARY TRACT INFECTION
     Dosage: 500 MG, BID
     Route: 048
     Dates: start: 20140920
  3. CIPRO [Suspect]
     Active Substance: CIPROFLOXACIN HYDROCHLORIDE
     Indication: URINARY TRACT INFECTION
     Dosage: 500 MG, BID

REACTIONS (24)
  - Anhedonia [None]
  - Urinary tract infection [None]
  - Muscular weakness [None]
  - Paraesthesia [None]
  - Mental disability [None]
  - Burning sensation [None]
  - Dizziness [None]
  - Cough [None]
  - Dysphemia [None]
  - Insomnia [Not Recovered/Not Resolved]
  - Product use issue [None]
  - Anxiety [None]
  - Suicidal ideation [Not Recovered/Not Resolved]
  - Feeling abnormal [Not Recovered/Not Resolved]
  - Neuropathy peripheral [None]
  - Chronic obstructive pulmonary disease [None]
  - Speech disorder [None]
  - Headache [None]
  - Hypoaesthesia [Not Recovered/Not Resolved]
  - Feeling abnormal [None]
  - Skin injury [None]
  - Productive cough [None]
  - Local swelling [None]
  - Atrophy [None]
